FAERS Safety Report 9322288 (Version 1)
Quarter: 2013Q2

REPORT INFORMATION
  Report Type: Spontaneous
  Country: US (occurrence: US)
  Receive Date: 20130531
  Receipt Date: 20130531
  Transmission Date: 20140414
  Serious: Yes (Hospitalization, Other)
  Sender: FDA-Public Use
  Company Number: US-GLAXOSMITHKLINE-B0895879A

PATIENT
  Age: 17 Year
  Sex: Female

DRUGS (2)
  1. BUPROPION [Suspect]
     Dosage: 7.95G PER DAY
     Route: 065
  2. LAMOTRIGINE [Suspect]
     Dosage: 4G PER DAY
     Route: 065

REACTIONS (15)
  - Circulatory collapse [Recovering/Resolving]
  - Intentional overdose [Unknown]
  - Convulsion [Unknown]
  - Acute lung injury [Unknown]
  - Nervous system disorder [Unknown]
  - Sinus tachycardia [Unknown]
  - Electrocardiogram QRS complex prolonged [Unknown]
  - Electrocardiogram QT prolonged [Unknown]
  - Grand mal convulsion [Unknown]
  - Ventricular tachycardia [Unknown]
  - Ventricular fibrillation [Unknown]
  - Pulseless electrical activity [Unknown]
  - Memory impairment [Unknown]
  - Coordination abnormal [Unknown]
  - Cognitive disorder [Unknown]
